FAERS Safety Report 4711611-8 (Version None)
Quarter: 2005Q2

REPORT INFORMATION
  Report Type: 
  Country: None (occurrence: None)
  Receive Date: 20050629
  Receipt Date: 20050428
  Transmission Date: 20051028
  Serious: No
  Sender: FDA-Public Use
  Company Number: 05P-163-0286765-00

PATIENT
  Age: 59 Year
  Sex: Male
  Weight: 106.8 kg

DRUGS (7)
  1. HUMIRA [Suspect]
     Indication: RHEUMATOID ARTHRITIS
     Dosage: SEE IMAGE
     Route: 058
     Dates: start: 20031201, end: 20050101
  2. HUMIRA [Suspect]
     Indication: RHEUMATOID ARTHRITIS
     Dosage: SEE IMAGE
     Route: 058
     Dates: start: 20050101, end: 20050410
  3. PREDNISONE [Concomitant]
  4. LEFLUNOMIDE [Concomitant]
  5. CELECOXIB [Concomitant]
  6. DIOVAN HCT [Concomitant]
  7. AMLODIPINE BESYLATE [Concomitant]

REACTIONS (5)
  - ARTHRALGIA [None]
  - ASEPTIC NECROSIS BONE [None]
  - CONDITION AGGRAVATED [None]
  - PROSTATIC SPECIFIC ANTIGEN INCREASED [None]
  - RED BLOOD CELL SEDIMENTATION RATE INCREASED [None]
